FAERS Safety Report 24297910 (Version 1)
Quarter: 2024Q3

REPORT INFORMATION
  Report Type: Spontaneous
  Country: US (occurrence: None)
  Receive Date: 20240906
  Receipt Date: 20240906
  Transmission Date: 20241017
  Serious: Yes (Death)
  Sender: Public
  Company Number: None

PATIENT
  Age: 79 Year
  Sex: Female

DRUGS (1)
  1. FULVESTRANT [Suspect]
     Active Substance: FULVESTRANT
     Indication: Myelodysplastic syndrome
     Dosage: FREQ: ADMINISTER DEEP IN THE MUSCLE AT INTERVALS QF ONE MONTH EITHER AS A SINGLE 5 ML QR 2 ?CONCURRE
     Route: 030
     Dates: start: 20240813, end: 20240825

REACTIONS (1)
  - Death [None]

NARRATIVE: CASE EVENT DATE: 20240825
